FAERS Safety Report 14171382 (Version 2)
Quarter: 2020Q3

REPORT INFORMATION
  Report Type: Spontaneous
  Country: JP (occurrence: JP)
  Receive Date: 20171108
  Receipt Date: 20200805
  Transmission Date: 20201102
  Serious: Yes (Death, Hospitalization, Other)
  Sender: FDA-Public Use
  Company Number: JP-SA-2017SA214474

PATIENT

DRUGS (2)
  1. AMARYL [Suspect]
     Active Substance: GLIMEPIRIDE
     Dosage: 1 MG, QD
     Route: 048
  2. AMARYL [Suspect]
     Active Substance: GLIMEPIRIDE
     Indication: TYPE 2 DIABETES MELLITUS
     Dosage: 3 MG, QD
     Route: 048
     Dates: start: 20171005, end: 20171007

REACTIONS (10)
  - Apallic syndrome [Unknown]
  - Cyanosis [Unknown]
  - Altered state of consciousness [Unknown]
  - Hypoglycaemia [Unknown]
  - Aspiration [Unknown]
  - Incorrect dosage administered [Unknown]
  - Death [Fatal]
  - Muscle rigidity [Unknown]
  - Cerebral infarction [Unknown]
  - Choking [Unknown]

NARRATIVE: CASE EVENT DATE: 201710
